FAERS Safety Report 20651484 (Version 3)
Quarter: 2022Q3

REPORT INFORMATION
  Report Type: Report from Study
  Country: AU (occurrence: None)
  Receive Date: 20220330
  Receipt Date: 20220720
  Transmission Date: 20221026
  Serious: Yes (Life-Threatening, Hospitalization)
  Sender: FDA-Public Use
  Company Number: AU-ROCHE-3061990

PATIENT
  Age: 71 Year
  Sex: Male
  Weight: 81.5 kg

DRUGS (15)
  1. ATEZOLIZUMAB [Suspect]
     Active Substance: ATEZOLIZUMAB
     Indication: Non-small cell lung cancer
     Dosage: DATE OF MOST RECENT DOSE OF STUDY DRUG PRIOR TO AE + SAE: 02/SEP/2021
     Route: 041
     Dates: start: 20210701
  2. ATEZOLIZUMAB [Suspect]
     Active Substance: ATEZOLIZUMAB
     Indication: Non-small cell lung cancer
     Dosage: DATE OF MOST RECENT DOSE OF STUDY DRUG PRIOR TO AE + SAE: 17/MAR/2022
     Route: 041
     Dates: start: 20211116
  3. CISPLATIN [Suspect]
     Active Substance: CISPLATIN
     Indication: Non-small cell lung cancer
     Dosage: DATE OF MOST RECENT DOSE OF STUDY DRUG PRIOR TO AE + SAE: 02/SEP/2021 (110 MG)
     Route: 042
     Dates: start: 20210701
  4. GEMCITABINE [Suspect]
     Active Substance: GEMCITABINE
     Indication: Non-small cell lung cancer
     Dosage: DATE OF MOST RECENT DOSE OF STUDY DRUG PRIOR TO AE + SAE: 09/SEP/2021 (1837 MG)
     Route: 042
     Dates: start: 20210701
  5. ATORVASTATIN [Concomitant]
     Active Substance: ATORVASTATIN
     Indication: Hypercholesterolaemia
     Dates: start: 2005
  6. METFORMIN [Concomitant]
     Active Substance: METFORMIN HYDROCHLORIDE
     Indication: Type 2 diabetes mellitus
     Dates: start: 2017
  7. METOPROLOL [Concomitant]
     Active Substance: METOPROLOL
     Indication: Hypertension
     Dates: start: 2005
  8. CLOPIDOGREL [Concomitant]
     Active Substance: CLOPIDOGREL BISULFATE
     Indication: Myocardial ischaemia
     Dates: start: 2016
  9. ASPIRIN [Concomitant]
     Active Substance: ASPIRIN
     Indication: Myocardial ischaemia
     Dates: start: 2005
  10. SERTRALINE [Concomitant]
     Active Substance: SERTRALINE HYDROCHLORIDE
     Indication: Depression
     Dates: start: 2000
  11. XALATAN [Concomitant]
     Active Substance: LATANOPROST
     Indication: Glaucoma
     Dates: start: 2014
  12. ACETAMINOPHEN [Concomitant]
     Active Substance: ACETAMINOPHEN
     Indication: Prophylaxis
     Dates: start: 2000
  13. THYROXINE [Concomitant]
     Active Substance: LEVOTHYROXINE
     Indication: Hypothyroidism
     Dates: start: 20211115
  14. PANTOPRAZOLE [Concomitant]
     Active Substance: PANTOPRAZOLE
     Dates: start: 20211209
  15. PREDNISOLONE [Concomitant]
     Active Substance: PREDNISOLONE
     Indication: Colitis
     Route: 048
     Dates: start: 20220113

REACTIONS (1)
  - Loss of consciousness [Recovered/Resolved]

NARRATIVE: CASE EVENT DATE: 20220319
